FAERS Safety Report 5623428-0 (Version None)
Quarter: 2008Q1

REPORT INFORMATION
  Report Type: 
  Country: None (occurrence: None)
  Receive Date: 20080207
  Receipt Date: 20080125
  Transmission Date: 20080703
  Serious: Yes (Hospitalization)
  Sender: FDA-Public Use
  Company Number: DSU-2008-00017

PATIENT
  Age: 72 Year
  Sex: Female
  Weight: 73 kg

DRUGS (4)
  1. CS-8663 (TABLET) [Suspect]
     Indication: HYPERTENSION
     Dosage: 40MG/10MG (QD), PER ORAL
     Route: 048
     Dates: start: 20071105
  2. ZOCOR [Concomitant]
  3. METFORMIN HCL [Concomitant]
  4. TOPROL-XL [Concomitant]

REACTIONS (3)
  - FALL [None]
  - GLYCOSYLATED HAEMOGLOBIN INCREASED [None]
  - TRANSIENT ISCHAEMIC ATTACK [None]
